FAERS Safety Report 15080466 (Version 5)
Quarter: 2020Q2

REPORT INFORMATION
  Report Type: Report from Study
  Country: CA (occurrence: CA)
  Receive Date: 20180628
  Receipt Date: 20200629
  Transmission Date: 20200713
  Serious: Yes (Hospitalization, Other)
  Sender: FDA-Public Use
  Company Number: CA-BIOGEN-2018BI00600841

PATIENT
  Age: 64 Year
  Sex: Male

DRUGS (2)
  1. TECFIDERA [Suspect]
     Active Substance: DIMETHYL FUMARATE
     Dosage: MIANTENANCE DOSE
     Route: 050
     Dates: start: 20080101, end: 20200619
  2. TECFIDERA [Suspect]
     Active Substance: DIMETHYL FUMARATE
     Indication: MULTIPLE SCLEROSIS
     Dosage: MIANTENANCE DOSE
     Route: 050

REACTIONS (10)
  - Vomiting [Not Recovered/Not Resolved]
  - Flushing [Not Recovered/Not Resolved]
  - Paraesthesia [Not Recovered/Not Resolved]
  - Exostosis [Not Recovered/Not Resolved]
  - Weight decreased [Not Recovered/Not Resolved]
  - Balance disorder [Not Recovered/Not Resolved]
  - Fatigue [Not Recovered/Not Resolved]
  - Nausea [Not Recovered/Not Resolved]
  - Hypokalaemia [Recovered/Resolved]
  - Decreased appetite [Not Recovered/Not Resolved]

NARRATIVE: CASE EVENT DATE: 2008
